FAERS Safety Report 11076067 (Version 3)
Quarter: 2015Q2

REPORT INFORMATION
  Report Type: Spontaneous
  Country: CH (occurrence: CH)
  Receive Date: 20150429
  Receipt Date: 20150522
  Transmission Date: 20150821
  Serious: Yes (Other)
  Sender: FDA-Public Use
  Company Number: CH-ABBVIE-15K-151-1382907-00

PATIENT
  Age: 42 Year
  Sex: Female
  Weight: 122 kg

DRUGS (8)
  1. METOJECT [Concomitant]
     Active Substance: METHOTREXATE SODIUM
     Dates: start: 201404
  2. ACIDUM FOLICUM [Concomitant]
     Active Substance: FOLIC ACID
     Indication: PRODUCT USED FOR UNKNOWN INDICATION
     Dates: start: 201402
  3. LODOTRA [Concomitant]
     Active Substance: PREDNISONE
     Indication: PRODUCT USED FOR UNKNOWN INDICATION
     Dates: start: 201407
  4. LODOTRA [Concomitant]
     Active Substance: PREDNISONE
     Dates: start: 201408
  5. HUMIRA [Suspect]
     Active Substance: ADALIMUMAB
     Indication: SERONEGATIVE ARTHRITIS
     Route: 065
     Dates: start: 20140815, end: 20141121
  6. METOJECT [Concomitant]
     Active Substance: METHOTREXATE SODIUM
     Dates: start: 201407
  7. METOJECT [Concomitant]
     Active Substance: METHOTREXATE SODIUM
     Dates: start: 201409
  8. METOJECT [Concomitant]
     Active Substance: METHOTREXATE SODIUM
     Indication: SERONEGATIVE ARTHRITIS
     Dates: start: 201402

REACTIONS (7)
  - Renal failure [Recovering/Resolving]
  - Renal cell carcinoma [Recovering/Resolving]
  - Cholelithiasis [Unknown]
  - Renal oncocytoma [Recovering/Resolving]
  - Hepatic steatosis [Unknown]
  - Red blood cell sedimentation rate increased [Unknown]
  - C-reactive protein increased [Unknown]

NARRATIVE: CASE EVENT DATE: 20150423
